FAERS Safety Report 23450069 (Version 1)
Quarter: 2024Q1

REPORT INFORMATION
  Report Type: Report from Study
  Country: US (occurrence: US)
  Receive Date: 20240129
  Receipt Date: 20240129
  Transmission Date: 20240410
  Serious: Yes (Death, Other)
  Sender: FDA-Public Use
  Company Number: US-ACADIA PHARMACEUTICALS INC.-ACA-2023-PIM-006129

PATIENT
  Sex: Male

DRUGS (1)
  1. NUPLAZID [Suspect]
     Active Substance: PIMAVANSERIN TARTRATE
     Indication: Parkinson^s disease psychosis
     Dosage: 34 MILLIGRAM, QD
     Route: 048
     Dates: end: 20240110

REACTIONS (5)
  - Parkinson^s disease psychosis [Recovered/Resolved]
  - Pancreatic carcinoma [Recovered/Resolved]
  - Hepatic cancer [Recovered/Resolved]
  - Lethargy [Not Recovered/Not Resolved]
  - Stupor [Not Recovered/Not Resolved]
